FAERS Safety Report 21327758 (Version 1)
Quarter: 2022Q3

REPORT INFORMATION
  Report Type: Other
  Country: US (occurrence: None)
  Receive Date: 20220913
  Receipt Date: 20220913
  Transmission Date: 20221027
  Serious: Yes (Hospitalization)
  Sender: FDA-Public Use
  Company Number: US-ROCHE-3114777

PATIENT
  Sex: Female
  Weight: 12.09 kg

DRUGS (1)
  1. EVRYSDI [Suspect]
     Active Substance: RISDIPLAM
     Indication: Spinal muscular atrophy
     Dosage: 0.75MG/ML , 80 ML (ON 100ML BOTTLE)

REACTIONS (2)
  - Bronchial secretion retention [Unknown]
  - Off label use [Unknown]
